FAERS Safety Report 20961504 (Version 3)
Quarter: 2022Q2

REPORT INFORMATION
  Report Type: Spontaneous
  Country: US (occurrence: US)
  Receive Date: 20220615
  Receipt Date: 20220627
  Transmission Date: 20220721
  Serious: No
  Sender: FDA-Public Use
  Company Number: US-BIOGEN-2022BI01132009

PATIENT
  Sex: Female

DRUGS (2)
  1. TYSABRI [Suspect]
     Active Substance: NATALIZUMAB
     Indication: Multiple sclerosis
     Route: 065
     Dates: start: 20180713
  2. TYSABRI [Suspect]
     Active Substance: NATALIZUMAB

REACTIONS (5)
  - Speech disorder [Unknown]
  - Stress [Unknown]
  - Asthenia [Unknown]
  - Multiple sclerosis [Unknown]
  - Anxiety [Unknown]
